FAERS Safety Report 4686851-7 (Version None)
Quarter: 2005Q2

REPORT INFORMATION
  Report Type: 
  Country: None (occurrence: None)
  Receive Date: 20050608
  Receipt Date: 20050531
  Transmission Date: 20051028
  Serious: No
  Sender: FDA-Public Use
  Company Number: 05H-008-0299777-00

PATIENT

DRUGS (1)
  1. MAGNESIUM SULFATE [Suspect]
     Indication: ATRIAL FIBRILLATION
     Dosage: 5G/100 ML, CONTINUOUS

REACTIONS (1)
  - BRADYCARDIA [None]
